FAERS Safety Report 8261955-0 (Version None)
Quarter: 2012Q2

REPORT INFORMATION
  Report Type: 
  Country: None (occurrence: None)
  Receive Date: 20120405
  Receipt Date: 20120330
  Transmission Date: 20120825
  Serious: Yes (Hospitalization)
  Sender: FDA-Public Use
  Company Number: US-PFIZER INC-2012044959

PATIENT
  Sex: Female
  Weight: 53.515 kg

DRUGS (19)
  1. KLONOPIN [Concomitant]
     Indication: PANIC ATTACK
     Dosage: 1 MG, AS NEEDED
  2. SPIRIVA [Concomitant]
     Dosage: UNK
  3. SYMBICORT [Concomitant]
     Dosage: UNK
  4. ATENOLOL AND CHLORTHALIDONE [Concomitant]
     Dosage: 50/25 MG, UNK
  5. BENTYL [Concomitant]
     Indication: ABDOMINAL PAIN UPPER
     Dosage: UNK, AS NEEDED
  6. EFFEXOR [Suspect]
     Indication: DEPRESSION
     Dosage: 150 MG, 1X/DAY
     Dates: start: 20100601
  7. XANAX [Concomitant]
     Indication: NERVOUS SYSTEM DISORDER
     Dosage: 1 MG, AS NEEDED
  8. FLEXERIL [Concomitant]
     Dosage: 10 MG, AS NEEDED
  9. POTASSIUM [Concomitant]
     Dosage: UNK, DAILY
  10. LORTAB [Concomitant]
     Indication: PAIN
     Dosage: 7.5/500 MG, AS NEEDED
  11. VITAMIN B-12 [Concomitant]
     Dosage: UNK, MONTHLY
  12. LISINOPRIL [Concomitant]
     Dosage: 10 MG, UNK
  13. NEXIUM [Concomitant]
     Dosage: UNK
  14. EFFEXOR [Suspect]
     Indication: NERVOUS SYSTEM DISORDER
  15. ALBUTEROL SULFATE [Concomitant]
     Dosage: UNK
  16. INDERAL [Concomitant]
     Indication: HYPERTENSION
     Dosage: 20 MG, AS NEEDED
  17. LASIX [Concomitant]
     Dosage: UNK, AS NEEDED
  18. LYRICA [Suspect]
     Indication: PAIN
     Dosage: UNK
  19. IPRATROPIUM BROMIDE AND ALBUTEROL SULFATE [Concomitant]
     Dosage: UNK, THREE TIMES A DAY OR EVERY FOUR HOURS AS NEEDED

REACTIONS (5)
  - SPLEEN DISORDER [None]
  - MALAISE [None]
  - PANCREATIC DISORDER [None]
  - OESOPHAGEAL NEOPLASM [None]
  - DRUG INEFFECTIVE [None]
